FAERS Safety Report 25026027 (Version 1)
Quarter: 2025Q1

REPORT INFORMATION
  Report Type: Report from Study
  Country: US (occurrence: US)
  Receive Date: 20250301
  Receipt Date: 20250301
  Transmission Date: 20250409
  Serious: Yes (Other)
  Sender: ABBVIE
  Company Number: US-ABBVIE-6149928

PATIENT
  Sex: Female

DRUGS (1)
  1. HUMIRA [Suspect]
     Active Substance: ADALIMUMAB
     Indication: Psoriasis
     Route: 058
     Dates: start: 20170804

REACTIONS (3)
  - Pituitary-dependent Cushing^s syndrome [Not Recovered/Not Resolved]
  - Single functional kidney [Not Recovered/Not Resolved]
  - Intervertebral disc disorder [Unknown]
